FAERS Safety Report 19748758 (Version 1)
Quarter: 2021Q3

REPORT INFORMATION
  Report Type: Spontaneous
  Country: US (occurrence: US)
  Receive Date: 20210824
  Receipt Date: 20210824
  Transmission Date: 20211014
  Serious: Yes (Hospitalization)
  Sender: FDA-Public Use
  Company Number: None

PATIENT
  Age: 68 Year
  Sex: Male
  Weight: 84.6 kg

DRUGS (1)
  1. RADIUM ?223 DICHLORIDE (BAY 88?8223) [Suspect]
     Active Substance: RADIUM RA-223 DICHLORIDE
     Dates: end: 20210706

REACTIONS (2)
  - Spinal laminectomy [None]
  - Spinal cord compression [None]

NARRATIVE: CASE EVENT DATE: 20210729
